FAERS Safety Report 8332873-4 (Version None)
Quarter: 2012Q2

REPORT INFORMATION
  Report Type: 
  Country: None (occurrence: None)
  Receive Date: 20120503
  Receipt Date: 20120427
  Transmission Date: 20120825
  Serious: Yes (Life-Threatening, Hospitalization, Disabling)
  Sender: FDA-Public Use
  Company Number: US-BAYER-2012-009314

PATIENT
  Age: 46 Year
  Sex: Female
  Weight: 54.422 kg

DRUGS (10)
  1. METHYLPREDNISOLONE [Concomitant]
  2. YASMIN [Suspect]
     Dosage: UNK
     Dates: start: 20051224, end: 20081001
  3. FLUOXETINE [Concomitant]
  4. CYCLOBENZAPRINE [Concomitant]
  5. YASMIN [Suspect]
     Indication: CONTRACEPTION
     Dosage: UNK
     Route: 048
     Dates: start: 20050926
  6. DIAZEPAM [Concomitant]
  7. AMITRIPTYLINE HCL [Concomitant]
  8. LEVAQUIN [Concomitant]
  9. TESSALON [Concomitant]
  10. PREDNISONE [Concomitant]

REACTIONS (5)
  - INJURY [None]
  - ANHEDONIA [None]
  - PULMONARY EMBOLISM [None]
  - ANXIETY [None]
  - PAIN [None]
